FAERS Safety Report 20136729 (Version 2)
Quarter: 2022Q1

REPORT INFORMATION
  Report Type: Report from Study
  Country: CN (occurrence: CN)
  Receive Date: 20211201
  Receipt Date: 20220104
  Transmission Date: 20220423
  Serious: Yes (Hospitalization)
  Sender: FDA-Public Use
  Company Number: CN-BRISTOL-MYERS SQUIBB COMPANY-BMS-2021-124261

PATIENT
  Age: 32 Year
  Sex: Female

DRUGS (1)
  1. NIVOLUMAB [Suspect]
     Active Substance: NIVOLUMAB
     Indication: Gastric cancer
     Dosage: 360 MILLIGRAM, Q3WK
     Route: 041
     Dates: start: 20210604

REACTIONS (4)
  - General physical health deterioration [Unknown]
  - Rash [Unknown]
  - Illness [Unknown]
  - Off label use [Unknown]
